FAERS Safety Report 17884798 (Version 7)
Quarter: 2020Q4

REPORT INFORMATION
  Report Type: Spontaneous
  Country: GB (occurrence: GB)
  Receive Date: 20200611
  Receipt Date: 20201118
  Transmission Date: 20210113
  Serious: Yes (Hospitalization, Other)
  Sender: FDA-Public Use
  Company Number: GB-NOVOPROD-732386

PATIENT
  Age: 35 Year
  Sex: Female
  Weight: 96.4 kg

DRUGS (4)
  1. NOVORAPID [Suspect]
     Active Substance: INSULIN ASPART
     Indication: TYPE 1 DIABETES MELLITUS
     Dosage: 41.7 IU, QD
     Route: 058
     Dates: start: 20200530
  2. NOVORAPID [Suspect]
     Active Substance: INSULIN ASPART
     Dosage: REINTRODUCED (NEW CARTRIDGE)
     Route: 058
  3. ASPIRIN [ACETYLSALICYLIC ACID] [Concomitant]
     Active Substance: ASPIRIN
     Dosage: 75 MG
     Route: 048
     Dates: start: 20200108, end: 20200625
  4. FOLIC ACID. [Concomitant]
     Active Substance: FOLIC ACID
     Dosage: 5 MG
     Route: 048

REACTIONS (5)
  - Product physical issue [Unknown]
  - Product leakage [Unknown]
  - Maternal exposure during pregnancy [Recovered/Resolved]
  - Diabetic retinopathy [Unknown]
  - Diabetic ketoacidosis [Recovered/Resolved]

NARRATIVE: CASE EVENT DATE: 20200530
